FAERS Safety Report 11181301 (Version 2)
Quarter: 2015Q3

REPORT INFORMATION
  Report Type: Spontaneous
  Country: JP (occurrence: JP)
  Receive Date: 20150611
  Receipt Date: 20150706
  Transmission Date: 20151125
  Serious: Yes (Other)
  Sender: FDA-Public Use
  Company Number: JP-SA-2015SA080278

PATIENT
  Sex: Female
  Weight: 35 kg

DRUGS (1)
  1. CEREZYME [Suspect]
     Active Substance: IMIGLUCERASE
     Indication: GAUCHER^S DISEASE
     Dosage: CEREZYME 1200 UNITS ON UNKNOWN DATE
     Route: 041

REACTIONS (1)
  - Patella fracture [Unknown]
